FAERS Safety Report 4919961-7 (Version None)
Quarter: 2006Q1

REPORT INFORMATION
  Report Type: 
  Country: None (occurrence: None)
  Receive Date: 20060217
  Receipt Date: 20060203
  Transmission Date: 20060701
  Serious: Yes (Death)
  Sender: FDA-Public Use
  Company Number: 2006-02-0634

PATIENT
  Age: 70 Year
  Sex: Female

DRUGS (1)
  1. NASONEX [Suspect]
     Dosage: NASAL SPRAY
     Route: 045

REACTIONS (1)
  - DEATH [None]
